FAERS Safety Report 5049038-4 (Version None)
Quarter: 2006Q3

REPORT INFORMATION
  Report Type: 
  Country: None (occurrence: None)
  Receive Date: 20060712
  Receipt Date: 20060130
  Transmission Date: 20061208
  Serious: No
  Sender: FDA-Public Use
  Company Number: US-GLAXOSMITHKLINE-A0591496A

PATIENT
  Age: 49 Year
  Sex: Female

DRUGS (9)
  1. IMITREX [Suspect]
     Indication: MIGRAINE
     Route: 048
  2. PHENOBARBITAL [Concomitant]
  3. TOPAMAX [Concomitant]
  4. LEXAPRO [Concomitant]
  5. AMITRIPTYLINE HCL [Concomitant]
  6. TRAMADOL HCL [Concomitant]
  7. ALPRAZOLAM [Concomitant]
  8. PROVIGIL [Concomitant]
  9. EVISTA [Concomitant]

REACTIONS (1)
  - DRUG INEFFECTIVE [None]
